FAERS Safety Report 11234657 (Version 1)
Quarter: 2015Q2

REPORT INFORMATION
  Report Type: Spontaneous
  Country: US (occurrence: None)
  Receive Date: 20150630
  Receipt Date: 20150630
  Transmission Date: 20150821
  Serious: Yes (Hospitalization)
  Sender: FDA-Public Use
  Company Number: US-H14001-15-00980

PATIENT
  Age: 12 Year
  Sex: Female
  Weight: 60 kg

DRUGS (2)
  1. AMLODIPINE [Suspect]
     Active Substance: AMLODIPINE BESYLATE
     Indication: PRODUCT USED FOR UNKNOWN INDICATION
  2. BENAZEPRIL [Suspect]
     Active Substance: BENAZEPRIL\BENAZEPRIL HYDROCHLORIDE
     Indication: PRODUCT USED FOR UNKNOWN INDICATION

REACTIONS (8)
  - Mental status changes [None]
  - Pneumonia aspiration [None]
  - Toxicity to various agents [None]
  - Overdose [None]
  - Heart rate decreased [None]
  - Blood glucose increased [None]
  - Hyperdynamic left ventricle [None]
  - Hypotension [None]
